FAERS Safety Report 6882145-X (Version None)
Quarter: 2010Q3

REPORT INFORMATION
  Report Type: 
  Country: None (occurrence: None)
  Receive Date: 20100729
  Receipt Date: 20100719
  Transmission Date: 20110219
  Serious: Yes (Hospitalization)
  Sender: FDA-Public Use
  Company Number: US-WYE-H16295610

PATIENT
  Age: 78 Year
  Sex: Male

DRUGS (1)
  1. TORISEL [Suspect]
     Indication: LEIOMYOSARCOMA
     Route: 042
     Dates: start: 20100527, end: 20100617

REACTIONS (1)
  - DYSPHAGIA [None]
